FAERS Safety Report 7780105-8 (Version None)
Quarter: 2011Q3

REPORT INFORMATION
  Report Type: 
  Country: None (occurrence: None)
  Receive Date: 20110922
  Receipt Date: 20110916
  Transmission Date: 20111222
  Serious: Yes (Life-Threatening, Hospitalization)
  Sender: FDA-Public Use
  Company Number: 2011MA013698

PATIENT
  Age: 61 Year
  Sex: Male

DRUGS (4)
  1. SPIRONOLACTONE [Concomitant]
  2. METFORMIN HCL [Suspect]
     Dosage: 500 MG;QAM;PO
     Route: 048
     Dates: start: 20030501
  3. FERRO DURETTER [Concomitant]
  4. NEXIUM [Concomitant]

REACTIONS (5)
  - SYNCOPE [None]
  - LACTIC ACIDOSIS [None]
  - FATIGUE [None]
  - MALAISE [None]
  - DISORIENTATION [None]
